FAERS Safety Report 21470821 (Version 1)
Quarter: 2022Q4

REPORT INFORMATION
  Report Type: Spontaneous
  Country: KW (occurrence: KW)
  Receive Date: 20221018
  Receipt Date: 20221018
  Transmission Date: 20230112
  Serious: Yes (Death)
  Sender: FDA-Public Use
  Company Number: KW-TEVA-2022-KW-2816177

PATIENT
  Age: 28 Year
  Sex: Male

DRUGS (2)
  1. WILZIN [Suspect]
     Active Substance: ZINC ACETATE
     Indication: Hepato-lenticular degeneration
     Dosage: 150 MILLIGRAM DAILY;
     Route: 048
     Dates: start: 20210901, end: 202209
  2. TRIENTINE [Concomitant]
     Active Substance: TRIENTINE
     Indication: Hepato-lenticular degeneration
     Route: 048
     Dates: start: 20211101, end: 20220101

REACTIONS (1)
  - Cardiac disorder [Fatal]
